FAERS Safety Report 13026820 (Version 1)
Quarter: 2016Q4

REPORT INFORMATION
  Report Type: Report from Study
  Country: US (occurrence: US)
  Receive Date: 20161214
  Receipt Date: 20161214
  Transmission Date: 20170207
  Serious: Yes (Death)
  Sender: FDA-Public Use
  Company Number: US-ROCHE-1866599

PATIENT
  Age: 61 Year
  Sex: Female
  Weight: 65 kg

DRUGS (2)
  1. BEVACIZUMAB [Suspect]
     Active Substance: BEVACIZUMAB
     Indication: LUNG ADENOCARCINOMA
     Route: 065
     Dates: start: 20131002, end: 20140602
  2. L-BLP25 [Suspect]
     Active Substance: TECEMOTIDE
     Indication: LUNG ADENOCARCINOMA
     Route: 065
     Dates: start: 20131003, end: 20140602

REACTIONS (1)
  - Death [Fatal]

NARRATIVE: CASE EVENT DATE: 20140617
